FAERS Safety Report 5851625-8 (Version None)
Quarter: 2008Q3

REPORT INFORMATION
  Report Type: 
  Country: None (occurrence: None)
  Receive Date: 20080820
  Receipt Date: 20080811
  Transmission Date: 20090109
  Serious: Yes (Life-Threatening, Hospitalization)
  Sender: FDA-Public Use
  Company Number: US-ELI_LILLY_AND_COMPANY-US200807002855

PATIENT
  Sex: Male
  Weight: 106.58 kg

DRUGS (13)
  1. BYETTA [Suspect]
     Indication: TYPE 2 DIABETES MELLITUS
     Dosage: 5 UG, 2/D
     Route: 058
     Dates: start: 20060101
  2. BYETTA [Suspect]
     Dosage: 10 UG, 2/D
     Route: 058
  3. VYTORIN [Concomitant]
     Dosage: UNK, UNK
     Route: 048
     Dates: start: 20080401
  4. AMARYL [Concomitant]
     Dosage: 0.5 MG, EACH MORNING
     Route: 048
     Dates: start: 20080601
  5. AMARYL [Concomitant]
     Dosage: 1 MG, EACH EVENING
     Route: 048
     Dates: start: 20080601
  6. GLUCOPHAGE [Concomitant]
     Route: 048
  7. NIACIN [Concomitant]
  8. ASPIRIN [Concomitant]
     Dosage: 162 MG, EACH EVENING
  9. VITAMIN TAB [Concomitant]
     Indication: PROPHYLAXIS
  10. FISH OIL [Concomitant]
  11. CALCIUM [Concomitant]
  12. ZETIA [Concomitant]
  13. LIPITOR [Concomitant]

REACTIONS (8)
  - ANOSMIA [None]
  - BLOOD GLUCOSE INCREASED [None]
  - CATATONIA [None]
  - CONVULSION [None]
  - DRUG INEFFECTIVE [None]
  - INFECTION [None]
  - LOSS OF CONSCIOUSNESS [None]
  - MEMORY IMPAIRMENT [None]
